FAERS Safety Report 20687593 (Version 1)
Quarter: 2022Q2

REPORT INFORMATION
  Report Type: Spontaneous
  Country: TW (occurrence: TW)
  Receive Date: 20220408
  Receipt Date: 20220408
  Transmission Date: 20220720
  Serious: Yes (Life-Threatening, Hospitalization)
  Sender: FDA-Public Use
  Company Number: TW-LUPIN PHARMACEUTICALS INC.-2022-05206

PATIENT
  Age: 39 Year
  Sex: Female

DRUGS (3)
  1. METHYLPREDNISOLONE [Suspect]
     Active Substance: METHYLPREDNISOLONE
     Indication: Drug reaction with eosinophilia and systemic symptoms
     Dosage: UNK UNK, QD (AVERAGE DOSE: 0.83 (MG/KG/D),MAX DOSE: 1.44 (MG/KG/D) FOR 24 DAYS)
     Route: 042
  2. METHYLPREDNISOLONE [Suspect]
     Active Substance: METHYLPREDNISOLONE
     Dosage: UNK UNK, QD (AVERAGE DOSE: 0.83 (MG/KG/D),MAX DOSE: 1.44 (MG/KG/D) FOR 24 DAYS)
     Route: 048
  3. METHYLPREDNISOLONE [Suspect]
     Active Substance: METHYLPREDNISOLONE
     Dosage: UNK (TAPERING)
     Route: 065

REACTIONS (3)
  - Rebound effect [Recovering/Resolving]
  - Asthenia [Unknown]
  - Nausea [Unknown]
